FAERS Safety Report 9516113 (Version 1)
Quarter: 2013Q3

REPORT INFORMATION
  Report Type: Spontaneous
  Country: GB (occurrence: GB)
  Receive Date: 20130911
  Receipt Date: 20130911
  Transmission Date: 20140515
  Serious: Yes (Other)
  Sender: FDA-Public Use
  Company Number: GB-VERTEX PHARMACEUTICALS INC-2013-009409

PATIENT
  Sex: Male

DRUGS (2)
  1. INCIVO [Suspect]
     Indication: HEPATITIS C
     Dosage: 750 MG, TID
     Route: 065
     Dates: end: 20130829
  2. SUBUTEX [Concomitant]
     Indication: INTENTIONAL DRUG MISUSE
     Dosage: DOSAGE FORM: UNSPECIFIED
     Route: 065

REACTIONS (3)
  - Rash [Unknown]
  - Anaemia [Unknown]
  - Off label use [Unknown]
